FAERS Safety Report 9486923 (Version 5)
Quarter: 2013Q4

REPORT INFORMATION
  Report Type: Spontaneous
  Country: JP (occurrence: JP)
  Receive Date: 20130829
  Receipt Date: 20131231
  Transmission Date: 20140711
  Serious: Yes (Other)
  Sender: FDA-Public Use
  Company Number: JP-B.I. PHARMACEUTICALS,INC./RIDGEFIELD-2013-BI-26804NB

PATIENT
  Age: 78 Year
  Sex: Female
  Weight: 85 kg

DRUGS (16)
  1. TRAZENTA [Suspect]
     Indication: TYPE 2 DIABETES MELLITUS
     Dosage: 5 MG
     Route: 048
     Dates: start: 20130416, end: 20130827
  2. BONALON [Suspect]
     Indication: OSTEOPOROSIS
     Dosage: 900 MCG
     Route: 042
     Dates: start: 20130628, end: 20130827
  3. BONALON [Suspect]
     Dosage: 900 MCG
     Route: 042
     Dates: start: 20130723
  4. BONALON [Suspect]
     Dosage: 900 MCG
     Route: 042
     Dates: start: 20130827
  5. LOXONIN / LOXOPROFEN SODIUM HYDRATE [Concomitant]
     Indication: OSTEOARTHRITIS
     Dosage: 100 MG
     Route: 065
     Dates: start: 20110907
  6. SHAKUYAKUKANZOTO [Concomitant]
     Indication: OSTEOARTHRITIS
     Dosage: 5 MG
     Route: 048
     Dates: start: 20120411
  7. VOLTAREN / DICLOFENAC SODIUM [Concomitant]
     Indication: OSTEOARTHRITIS
     Route: 048
     Dates: start: 20120411
  8. INTEBAN / INDOMETACIN [Concomitant]
     Indication: OSTEOARTHRITIS
     Route: 065
     Dates: start: 20120808
  9. CELECOX / CELECOXIB [Concomitant]
     Indication: OSTEOARTHRITIS
     Route: 048
     Dates: start: 20121211
  10. MUCOSTA / REBAMIPIDE [Concomitant]
     Indication: GASTRITIS
     Dosage: 200 MG
     Route: 048
     Dates: start: 20121211
  11. TRICOR / FENOFIBRATE [Concomitant]
     Indication: HYPERURICAEMIA
     Dosage: 10 MG
     Route: 048
     Dates: start: 20110904
  12. OLMETEC / OLMESARTAN MEDOXOMIL [Concomitant]
     Indication: HYPERTENSION
     Route: 048
     Dates: start: 20120412
  13. METGLUCO / METFORMIN HYDROCHLORIDE [Concomitant]
     Indication: DIABETES MELLITUS
     Dosage: 750 MG
     Route: 048
     Dates: start: 20120412
  14. KINEDAK / EPALRESTAT [Concomitant]
     Indication: DIABETIC NEUROPATHY
     Route: 048
     Dates: start: 20120412, end: 20130827
  15. SEIBULE / MIGLITOL [Concomitant]
     Indication: DIABETES MELLITUS
     Dosage: 150 MG
     Route: 048
     Dates: start: 20120412, end: 20130827
  16. FEBURIC (FEBUXOSTAT) [Concomitant]
     Indication: HYPERURICAEMIA
     Dosage: 10 MG
     Route: 048
     Dates: start: 20120412

REACTIONS (1)
  - White blood cell count decreased [Recovered/Resolved]
